APPROVED DRUG PRODUCT: METFORMIN HYDROCHLORIDE
Active Ingredient: METFORMIN HYDROCHLORIDE
Strength: 750MG
Dosage Form/Route: TABLET, EXTENDED RELEASE;ORAL
Application: A076878 | Product #001
Applicant: ACTAVIS ELIZABETH LLC
Approved: Apr 13, 2005 | RLD: No | RS: No | Type: DISCN